FAERS Safety Report 6968379-4 (Version None)
Quarter: 2010Q3

REPORT INFORMATION
  Report Type: 
  Country: None (occurrence: None)
  Receive Date: 20100907
  Receipt Date: 20100901
  Transmission Date: 20110219
  Serious: Yes (Death, Life-Threatening, Hospitalization)
  Sender: FDA-Public Use
  Company Number: SE-CELGENEUS-150-21880-10090142

PATIENT
  Sex: Female
  Weight: 61 kg

DRUGS (9)
  1. REVLIMID [Suspect]
     Route: 048
     Dates: start: 20100608
  2. REVLIMID [Suspect]
     Route: 048
     Dates: start: 20100804, end: 20100824
  3. GEMCITABINE HCL [Suspect]
     Route: 065
  4. METOCLOPRAMIDE [Concomitant]
     Dosage: 10MG X 3 AND PRN
     Route: 048
     Dates: start: 20100603
  5. MORPHINE [Concomitant]
     Indication: PAIN
     Route: 048
     Dates: start: 20100621
  6. DALTEPARIN SODIUM [Concomitant]
     Indication: THROMBOSIS
     Route: 058
     Dates: start: 20100603
  7. LEVOTHYROXINE [Concomitant]
     Indication: HYPOTHYROIDISM
     Route: 048
     Dates: start: 20100604
  8. ATENOLOL [Concomitant]
     Route: 048
     Dates: start: 20080103
  9. BETAMETHASONE [Concomitant]
     Indication: PRODUCT USED FOR UNKNOWN INDICATION
     Route: 065

REACTIONS (1)
  - GASTRIC PERFORATION [None]
